FAERS Safety Report 6839454-X (Version None)
Quarter: 2010Q3

REPORT INFORMATION
  Report Type: 
  Country: None (occurrence: None)
  Receive Date: 20100714
  Receipt Date: 20090713
  Transmission Date: 20110219
  Serious: No
  Sender: FDA-Public Use
  Company Number: A0788605A

PATIENT
  Age: 67 Year
  Sex: Male

DRUGS (6)
  1. FLOVENT [Suspect]
     Indication: ASTHMA
     Dosage: 110MCG TWICE PER DAY
     Route: 055
     Dates: start: 20010101
  2. SPIRIVA [Concomitant]
  3. SINGULAIR [Concomitant]
  4. SIMVASTATIN [Concomitant]
  5. TOPROL-XL [Concomitant]
  6. DILTIAZEM [Concomitant]

REACTIONS (2)
  - DYSPHONIA [None]
  - PRODUCT QUALITY ISSUE [None]
